FAERS Safety Report 12686601 (Version 1)
Quarter: 2016Q3

REPORT INFORMATION
  Report Type: Spontaneous
  Country: US (occurrence: US)
  Receive Date: 20160825
  Receipt Date: 20160825
  Transmission Date: 20161109
  Serious: No
  Sender: FDA-Public Use
  Company Number: US-JAZZ-2016-US-006939

PATIENT
  Sex: Female

DRUGS (14)
  1. XYREM [Suspect]
     Active Substance: SODIUM OXYBATE
     Dosage: 3 G, BID
     Route: 048
     Dates: start: 200908, end: 2011
  2. XYREM [Suspect]
     Active Substance: SODIUM OXYBATE
     Dosage: 2.25 G, BID
     Route: 048
     Dates: start: 201202, end: 201202
  3. MUCINEX [Concomitant]
     Active Substance: GUAIFENESIN
  4. XYREM [Suspect]
     Active Substance: SODIUM OXYBATE
     Dosage: 2.25 G, BID
     Route: 048
     Dates: start: 201210
  5. XYREM [Suspect]
     Active Substance: SODIUM OXYBATE
     Dosage: DOSE ADJUSTMENTS
     Route: 048
     Dates: start: 201202, end: 201210
  6. LATUDA [Concomitant]
     Active Substance: LURASIDONE HYDROCHLORIDE
  7. CYTOMEL [Concomitant]
     Active Substance: LIOTHYRONINE SODIUM
  8. XYREM [Suspect]
     Active Substance: SODIUM OXYBATE
     Indication: HYPERSOMNIA
     Dosage: 1.5 G, BID
     Route: 048
     Dates: start: 200811, end: 200811
  9. XYREM [Suspect]
     Active Substance: SODIUM OXYBATE
     Dosage: DOSE ADJUSTMENTS
     Route: 048
  10. EFFEXOR [Concomitant]
     Active Substance: VENLAFAXINE HYDROCHLORIDE
  11. PROVIGIL [Concomitant]
     Active Substance: MODAFINIL
  12. VITAMINS [Concomitant]
     Active Substance: VITAMINS
  13. IBUPROFEN. [Concomitant]
     Active Substance: IBUPROFEN
  14. LEXAPRO [Concomitant]
     Active Substance: ESCITALOPRAM OXALATE

REACTIONS (1)
  - Balance disorder [Not Recovered/Not Resolved]
